FAERS Safety Report 11910943 (Version 7)
Quarter: 2016Q2

REPORT INFORMATION
  Report Type: Report from Study
  Country: AU (occurrence: AU)
  Receive Date: 20160112
  Receipt Date: 20160602
  Transmission Date: 20160815
  Serious: Yes (Hospitalization, Other)
  Sender: FDA-Public Use
  Company Number: AU-BAYER-2015-422939

PATIENT
  Age: 77 Year
  Sex: Female

DRUGS (10)
  1. ADEMPAS [Suspect]
     Active Substance: RIOCIGUAT
     Indication: PULMONARY HYPERTENSION
     Dosage: 1 MG, TID
     Route: 048
     Dates: start: 20150913, end: 20151201
  2. ADEMPAS [Suspect]
     Active Substance: RIOCIGUAT
     Indication: PULMONARY HYPERTENSION
     Dosage: 1.5MG AM/MIDDAY, 2.0NOCTE
     Route: 048
  3. ADEMPAS [Suspect]
     Active Substance: RIOCIGUAT
     Indication: PULMONARY HYPERTENSION
     Dosage: 2.5MG (0.5MG DAY, 1.0MG MIDI AND NIGHT)
     Route: 048
  4. ADEMPAS [Suspect]
     Active Substance: RIOCIGUAT
     Indication: PULMONARY HYPERTENSION
     Dosage: 1.5 MG, TOTAL DAILY DOSE
     Route: 048
     Dates: start: 201601
  5. ADEMPAS [Suspect]
     Active Substance: RIOCIGUAT
     Indication: PULMONARY HYPERTENSION
     Dosage: 0.5MG-1.5 MG (0.5 MG, VARIED DOSES)
     Route: 048
     Dates: end: 20151021
  6. ADEMPAS [Suspect]
     Active Substance: RIOCIGUAT
     Indication: PULMONARY HYPERTENSION
     Dosage: VARIED
     Route: 048
     Dates: end: 20151215
  7. ADEMPAS [Suspect]
     Active Substance: RIOCIGUAT
     Indication: PULMONARY HYPERTENSION
     Dosage: 1 MG, THREE TIMES DAILY
     Route: 048
     Dates: start: 20160205
  8. ADEMPAS [Suspect]
     Active Substance: RIOCIGUAT
     Indication: PULMONARY HYPERTENSION
     Dosage: 0.5 MG, TID
     Route: 048
     Dates: start: 20150814, end: 20150913
  9. ADEMPAS [Suspect]
     Active Substance: RIOCIGUAT
     Indication: PULMONARY HYPERTENSION
     Dosage: 2.0MG (0.5MG MANE + MIDI, 1.0MG NOCTE)
     Dates: start: 20151201
  10. ADEMPAS [Suspect]
     Active Substance: RIOCIGUAT
     Indication: PULMONARY HYPERTENSION
     Dosage: 1.5 MG, UNK
     Route: 048
     Dates: start: 201604

REACTIONS (44)
  - Restlessness [None]
  - Headache [Unknown]
  - Intentional product misuse [None]
  - Diarrhoea [Not Recovered/Not Resolved]
  - Dyspnoea [None]
  - Blood pressure decreased [None]
  - Oropharyngeal discomfort [Not Recovered/Not Resolved]
  - Feeling abnormal [Unknown]
  - Dyspnoea [Unknown]
  - Underdose [Recovering/Resolving]
  - Weight increased [Not Recovered/Not Resolved]
  - International normalised ratio fluctuation [Unknown]
  - Dyspnoea [Not Recovered/Not Resolved]
  - Gastric antral vascular ectasia [None]
  - Wrong technique in product usage process [Not Recovered/Not Resolved]
  - Pain in extremity [None]
  - Product use issue [Recovered/Resolved]
  - Muscle spasms [None]
  - Peripheral swelling [Not Recovered/Not Resolved]
  - Exercise tolerance decreased [Not Recovered/Not Resolved]
  - Contusion [Unknown]
  - Dyspnoea [Unknown]
  - Epistaxis [Unknown]
  - Anxiety [None]
  - Stress [None]
  - Feeling abnormal [None]
  - Gait disturbance [None]
  - Blood iron decreased [Not Recovered/Not Resolved]
  - Alopecia [Not Recovered/Not Resolved]
  - Dyspepsia [None]
  - Palpitations [Not Recovered/Not Resolved]
  - Palpitations [None]
  - Fatigue [Not Recovered/Not Resolved]
  - Intentional product misuse [Recovering/Resolving]
  - Gastric antral vascular ectasia [Recovering/Resolving]
  - Transfusion [None]
  - Mineral supplementation [None]
  - Melaena [None]
  - Diarrhoea [None]
  - Joint swelling [Not Recovered/Not Resolved]
  - Fatigue [None]
  - Melaena [Recovering/Resolving]
  - Toxicity to various agents [Unknown]
  - Peripheral swelling [Recovered/Resolved]

NARRATIVE: CASE EVENT DATE: 20150911
